FAERS Safety Report 10227879 (Version 1)
Quarter: 2014Q2

REPORT INFORMATION
  Report Type: Spontaneous
  Country: US (occurrence: US)
  Receive Date: 20140610
  Receipt Date: 20140610
  Transmission Date: 20141212
  Serious: No
  Sender: FDA-Public Use
  Company Number: US-009507513-1406USA000345

PATIENT
  Age: 31 Year
  Sex: Female

DRUGS (1)
  1. NEXPLANON [Suspect]
     Indication: CONTRACEPTION
     Dosage: 1 DEVICE FOR 3 YEARS
     Route: 059
     Dates: start: 201305

REACTIONS (4)
  - Injury [Unknown]
  - Implant site haemorrhage [Unknown]
  - Implant site bruising [Unknown]
  - Metrorrhagia [Unknown]
